FAERS Safety Report 21949722 (Version 1)
Quarter: 2023Q1

REPORT INFORMATION
  Report Type: Spontaneous
  Country: IT (occurrence: IT)
  Receive Date: 20230203
  Receipt Date: 20230203
  Transmission Date: 20230418
  Serious: Yes (Other)
  Sender: FDA-Public Use
  Company Number: IT-MYLANLABS-2023M1012500

PATIENT
  Age: 8 Year
  Sex: Male

DRUGS (7)
  1. CETIRIZINE [Suspect]
     Active Substance: CETIRIZINE HYDROCHLORIDE
     Indication: Systemic mastocytosis
     Dosage: 10 MILLIGRAM, BID
     Route: 048
  2. KETOTIFEN [Suspect]
     Active Substance: KETOTIFEN
     Indication: Systemic mastocytosis
     Dosage: 1 MILLIGRAM, BID
     Route: 048
  3. KETOTIFEN [Suspect]
     Active Substance: KETOTIFEN
     Dosage: UNK
     Route: 048
  4. PREDNISONE [Suspect]
     Active Substance: PREDNISONE
     Indication: Systemic mastocytosis
     Dosage: UNK, QD (PREDNISONE- 1-2MG/KG/DAY FOR AVERAGE 2-5 CONSECUTIVE DAYS)
     Route: 048
  5. CROMOLYN SODIUM [Suspect]
     Active Substance: CROMOLYN SODIUM
     Indication: Systemic mastocytosis
     Dosage: 250 MILLIGRAM, QID
     Route: 065
  6. CROMOLYN SODIUM [Suspect]
     Active Substance: CROMOLYN SODIUM
     Dosage: UNK
     Route: 065
  7. XOLAIR [Concomitant]
     Active Substance: OMALIZUMAB
     Indication: Systemic mastocytosis
     Dosage: 300 MILLIGRAM (DOSE OF 300MG WAS CALCULATED ACCORDING TO THE PATIENT WEIGHT)
     Route: 058

REACTIONS (1)
  - Drug ineffective [Unknown]
